FAERS Safety Report 20146390 (Version 1)
Quarter: 2021Q4

REPORT INFORMATION
  Report Type: Spontaneous
  Country: ES (occurrence: ES)
  Receive Date: 20211203
  Receipt Date: 20211203
  Transmission Date: 20220303
  Serious: Yes (Hospitalization)
  Sender: FDA-Public Use
  Company Number: ES-NOVARTISPH-NVSC2021ES273663

PATIENT
  Age: 9 Year
  Sex: Female

DRUGS (8)
  1. HYDROCHLOROTHIAZIDE [Suspect]
     Active Substance: HYDROCHLOROTHIAZIDE
     Indication: Product used for unknown indication
     Dosage: 28 MG, Q8H
     Route: 048
     Dates: start: 20210713, end: 20210728
  2. KETAMINE HYDROCHLORIDE [Suspect]
     Active Substance: KETAMINE HYDROCHLORIDE
     Indication: Product used for unknown indication
     Dosage: 12 G TOTAL
     Route: 041
     Dates: start: 20210718, end: 20210731
  3. MEROPENEM [Suspect]
     Active Substance: MEROPENEM
     Indication: Product used for unknown indication
     Dosage: 650 MG, Q12H
     Route: 042
     Dates: start: 20210708, end: 20210726
  4. CIPROFLOXACIN [Suspect]
     Active Substance: CIPROFLOXACIN
     Indication: Product used for unknown indication
     Dosage: 333 MG, Q12H
     Route: 042
     Dates: start: 20210708, end: 20210714
  5. LEVETIRACETAM [Suspect]
     Active Substance: LEVETIRACETAM
     Indication: Product used for unknown indication
     Dosage: 333 MG, Q12H
     Route: 042
     Dates: start: 20210718, end: 20210806
  6. CLORAZEPATE MONOPOTASSIUM [Concomitant]
     Active Substance: CLORAZEPATE MONOPOTASSIUM
     Indication: Product used for unknown indication
     Dosage: 4 MG, Q8H
     Route: 042
     Dates: start: 20210716, end: 20210806
  7. CHLORAL HYDRATE [Concomitant]
     Active Substance: CHLORAL HYDRATE
     Indication: Product used for unknown indication
     Dosage: 197 MG, Q8H
     Route: 048
     Dates: start: 20210723, end: 20210806
  8. GANCICLOVIR [Concomitant]
     Active Substance: GANCICLOVIR
     Indication: Product used for unknown indication
     Dosage: 55 MG, Q12H
     Route: 042
     Dates: start: 20210714, end: 20210802

REACTIONS (6)
  - Rash [Recovered/Resolved]
  - Hypertransaminasaemia [Recovered/Resolved]
  - Drug reaction with eosinophilia and systemic symptoms [Recovered/Resolved]
  - Eosinophilia [Recovered/Resolved]
  - Hallucination [Recovered/Resolved]
  - Lymphocytosis [Recovered/Resolved]

NARRATIVE: CASE EVENT DATE: 20210726
